FAERS Safety Report 10102357 (Version 1)
Quarter: 2014Q2

REPORT INFORMATION
  Report Type: Spontaneous
  Country: US (occurrence: US)
  Receive Date: 20140424
  Receipt Date: 20140424
  Transmission Date: 20141212
  Serious: Yes (Other)
  Sender: FDA-Public Use
  Company Number: US-PFIZER INC-2014109543

PATIENT
  Age: 40 Year
  Sex: Male

DRUGS (32)
  1. XALKORI [Suspect]
     Indication: LUNG ADENOCARCINOMA STAGE IV
     Dosage: 200 MG, 2X/DAY ON (TUE, THURS, SAT, SUN)
     Route: 048
     Dates: start: 201211
  2. XALKORI [Suspect]
     Dosage: 200 MG, 2X/DAY ON (MON, WED, FRI)
     Route: 048
     Dates: start: 201211
  3. XALKORI [Suspect]
     Dosage: 200 MG, 2X/DAY
     Route: 048
     Dates: start: 20130401
  4. XALKORI [Suspect]
     Dosage: 205 MG, 2X/DAY
     Route: 048
  5. XALKORI [Suspect]
     Dosage: 250 MG, 2X/DAY
  6. ZOMETA [Concomitant]
     Dosage: UNK
     Dates: start: 201211
  7. DECADRON [Concomitant]
     Dosage: 2 MG, DAILY
  8. DECADRON [Concomitant]
     Dosage: TWICE A DAY
     Route: 048
     Dates: start: 20121031
  9. DECADRON [Concomitant]
     Dosage: STRENGHT 2 MG, ONCE A DAY
     Route: 048
     Dates: start: 20140122
  10. DECADRON [Concomitant]
     Dosage: STRENGHT 1 MG, ONCE DAILY
     Route: 048
     Dates: start: 20130227
  11. DECADRON [Concomitant]
     Dosage: 1 TAB TWICE DAILY
     Route: 048
     Dates: start: 20130820
  12. DEPAKOTE [Concomitant]
     Dosage: 250 MG, 3X/DAY
  13. DEPAKOTE [Concomitant]
     Dosage: 1 TAB, EVERY 8H
     Route: 048
     Dates: start: 20121031
  14. TYLENOL [Concomitant]
     Dosage: AS NEEDED
  15. MOTRIN [Concomitant]
     Indication: PAIN
     Dosage: 600 MG, AS NEEDED
  16. ZANTAC [Concomitant]
     Dosage: 150 MG, AS NEEDED
  17. ZANTAC [Concomitant]
     Dosage: 150 MG, DAILY
     Route: 048
  18. MIRALAX [Concomitant]
     Dosage: AS NEEDED
  19. AMITRIPTYLINE [Concomitant]
     Dosage: 10 MG, DAILY
  20. PRILOSEC [Concomitant]
     Dosage: 40 MG, DAILY
  21. PRILOSEC [Concomitant]
     Dosage: 40 MG, 1X/DAY
     Route: 048
     Dates: start: 20130109
  22. COLACE [Concomitant]
     Dosage: 100 MG, 2X/DAY
  23. SENOKOT [Concomitant]
     Dosage: TWO TABS AT BEDTIME
     Route: 048
     Dates: start: 20121108
  24. COMPAZINE [Concomitant]
     Indication: NAUSEA
     Dosage: 10 MG, AS NEEDED
  25. COMPAZINE [Concomitant]
     Indication: VOMITING
     Dosage: 1 TAB, THREE TIMES A DAY PRIOR TO MEALS
     Route: 048
     Dates: start: 20121108
  26. COMPAZINE [Concomitant]
     Dosage: 1 TAB, THREE TIMES A DAY PRIOR TO MEALS
     Dates: start: 20121114
  27. COMPAZINE [Concomitant]
     Dosage: 1 TAB, EVERY SIX HOURS
     Route: 048
     Dates: start: 20130205
  28. COMPAZINE [Concomitant]
     Dosage: 1 TAB, EVERY SIX HOURS
     Dates: start: 20130522
  29. COMPAZINE [Concomitant]
     Dosage: 1 TAB, EVERY SIX HOURS
     Dates: start: 20130723
  30. COMPAZINE [Concomitant]
     Dosage: 1 TAB, EVERY SIX HOURS
     Dates: start: 20130820
  31. STOOL SOFTENER [Concomitant]
  32. COUGH SYRUP [Concomitant]

REACTIONS (8)
  - Pulmonary embolism [Unknown]
  - Syncope [Unknown]
  - Nasopharyngitis [Unknown]
  - Muscle spasms [Unknown]
  - Constipation [Unknown]
  - Alanine aminotransferase increased [Unknown]
  - Asthenia [Unknown]
  - Fatigue [Unknown]
